FAERS Safety Report 16688999 (Version 1)
Quarter: 2019Q3

REPORT INFORMATION
  Report Type: Spontaneous
  Country: US (occurrence: US)
  Receive Date: 20190809
  Receipt Date: 20190809
  Transmission Date: 20191004
  Serious: Yes (Hospitalization)
  Sender: FDA-Public Use
  Company Number: US-GILEAD-2019-0420888

PATIENT
  Age: 59 Year
  Sex: Female

DRUGS (8)
  1. HARVONI [Suspect]
     Active Substance: LEDIPASVIR\SOFOSBUVIR
     Indication: PRODUCT USED FOR UNKNOWN INDICATION
     Route: 065
  2. LANTUS [Concomitant]
     Active Substance: INSULIN GLARGINE
  3. GENVOYA [Concomitant]
     Active Substance: COBICISTAT\ELVITEGRAVIR\EMTRICITABINE\TENOFOVIR ALAFENAMIDE FUMARATE
     Indication: PRODUCT USED FOR UNKNOWN INDICATION
  4. LOMOTIL [LOPERAMIDE HYDROCHLORIDE] [Concomitant]
  5. VISTARIL [HYDROXYZINE EMBONATE] [Concomitant]
  6. HUMALOG [Concomitant]
     Active Substance: INSULIN LISPRO
  7. LISINOPRIL. [Concomitant]
     Active Substance: LISINOPRIL
  8. FOLIC ACID. [Concomitant]
     Active Substance: FOLIC ACID
     Dosage: 1 MG

REACTIONS (1)
  - Fall [Unknown]

NARRATIVE: CASE EVENT DATE: 20190729
